FAERS Safety Report 19485959 (Version 1)
Quarter: 2021Q3

REPORT INFORMATION
  Report Type: Spontaneous
  Country: IN (occurrence: IN)
  Receive Date: 20210702
  Receipt Date: 20210702
  Transmission Date: 20211014
  Serious: Yes (Hospitalization)
  Sender: FDA-Public Use
  Company Number: IN-ENDO PHARMACEUTICALS INC-2021-009978

PATIENT
  Age: 40 Year
  Sex: Male

DRUGS (4)
  1. DISULFIRAM. [Suspect]
     Active Substance: DISULFIRAM
     Indication: ALCOHOL USE DISORDER
     Dosage: 500 MG, MIXED IT IN HIS FOOD
     Route: 048
  2. DISULFIRAM. [Suspect]
     Active Substance: DISULFIRAM
     Dosage: 1 G, DAILY
     Route: 048
  3. ALCOHOL. [Suspect]
     Active Substance: ALCOHOL
     Dosage: HEAVY ALCOHOL USE
     Route: 065
  4. ALCOHOL. [Suspect]
     Active Substance: ALCOHOL
     Indication: ALCOHOL USE
     Dosage: UNK UNKNOWN, UNKNOWN
     Route: 065

REACTIONS (3)
  - Cerebral infarction [Unknown]
  - Alcohol intolerance [Unknown]
  - Off label use [Unknown]
